FAERS Safety Report 25077609 (Version 1)
Quarter: 2025Q1

REPORT INFORMATION
  Report Type: Spontaneous
  Country: CA (occurrence: None)
  Receive Date: 20250314
  Receipt Date: 20250314
  Transmission Date: 20250409
  Serious: Yes (Hospitalization)
  Sender: NORDIC PHARMA
  Company Number: CA-MLMSERVICE-20250217-PI403389-00218-1

PATIENT
  Age: 68 Year
  Sex: Female

DRUGS (2)
  1. METHOTREXATE [Suspect]
     Active Substance: METHOTREXATE
     Indication: Rheumatoid arthritis
  2. ADALIMUMAB [Concomitant]
     Active Substance: ADALIMUMAB
     Indication: Sjogren^s syndrome

REACTIONS (7)
  - Hypersensitivity pneumonitis [Recovering/Resolving]
  - Granulomatous liver disease [Recovering/Resolving]
  - Cholestasis [Recovering/Resolving]
  - Histoplasmosis disseminated [Recovering/Resolving]
  - Respiratory failure [Recovering/Resolving]
  - Hypertransaminasaemia [Recovering/Resolving]
  - Product use in unapproved indication [Unknown]
